FAERS Safety Report 8457089-2 (Version None)
Quarter: 2012Q2

REPORT INFORMATION
  Report Type: 
  Country: None (occurrence: None)
  Receive Date: 20120621
  Receipt Date: 20120608
  Transmission Date: 20120825
  Serious: Yes (Hospitalization)
  Sender: FDA-Public Use
  Company Number: FR-MYLANLABS-2012S1011856

PATIENT
  Age: 47 Year
  Sex: Female

DRUGS (2)
  1. BROMAZEPAM [Concomitant]
     Indication: DEPRESSION
     Dosage: 3 MG/DAY
     Route: 065
  2. CLOMIPRAMINE HCL [Suspect]
     Indication: DEPRESSION
     Dosage: 50MG
     Route: 065

REACTIONS (2)
  - PULMONARY EOSINOPHILIA [None]
  - DRUG RASH WITH EOSINOPHILIA AND SYSTEMIC SYMPTOMS [None]
